FAERS Safety Report 20449351 (Version 1)
Quarter: 2022Q1

REPORT INFORMATION
  Report Type: Spontaneous
  Country: US (occurrence: US)
  Receive Date: 20220209
  Receipt Date: 20220209
  Transmission Date: 20220424
  Serious: No
  Sender: FDA-Public Use
  Company Number: US-BAUSCH-BL-2022-003241

PATIENT
  Age: 88 Year
  Sex: Female

DRUGS (3)
  1. TRULANCE [Suspect]
     Active Substance: PLECANATIDE
     Indication: Irritable bowel syndrome
     Route: 048
  2. TRULANCE [Suspect]
     Active Substance: PLECANATIDE
     Route: 048
  3. MIRALAX [Concomitant]
     Active Substance: POLYETHYLENE GLYCOL 3350
     Indication: Product used for unknown indication
     Dosage: AS NEEDED
     Route: 065

REACTIONS (7)
  - Chills [Unknown]
  - Sneezing [Unknown]
  - Headache [Not Recovered/Not Resolved]
  - Cough [Unknown]
  - Weight increased [Unknown]
  - Constipation [Unknown]
  - Product prescribing error [Unknown]
